FAERS Safety Report 4623335-6 (Version None)
Quarter: 2005Q1

REPORT INFORMATION
  Report Type: 
  Country: None (occurrence: None)
  Receive Date: 20050330
  Receipt Date: 20050322
  Transmission Date: 20050727
  Serious: Yes (Death)
  Sender: FDA-Public Use
  Company Number: DE-MERCK-0503USA04332

PATIENT
  Age: 72 Year
  Sex: Male

DRUGS (6)
  1. DECADRON [Suspect]
     Indication: ACUTE LYMPHOCYTIC LEUKAEMIA
     Route: 048
     Dates: start: 20010101
  2. CYCLOPHOSPHAMIDE [Suspect]
     Route: 065
  3. VINCRISTINE SULFATE [Suspect]
     Route: 065
  4. IDARUBICIN HCL [Suspect]
     Route: 065
  5. CYCLOPHOSPHAMIDE [Suspect]
     Route: 065
  6. CYTARABINE [Suspect]
     Route: 065

REACTIONS (8)
  - ACUTE LYMPHOCYTIC LEUKAEMIA [None]
  - DEATH [None]
  - DIABETES MELLITUS INSULIN-DEPENDENT [None]
  - MENINGISM [None]
  - MENTAL DISORDER DUE TO A GENERAL MEDICAL CONDITION [None]
  - NEUROTOXICITY [None]
  - RENAL FAILURE [None]
  - SOMNOLENCE [None]
